FAERS Safety Report 16411750 (Version 1)
Quarter: 2019Q2

REPORT INFORMATION
  Report Type: Spontaneous
  Country: JP (occurrence: JP)
  Receive Date: 20190610
  Receipt Date: 20190610
  Transmission Date: 20190711
  Serious: Yes (Death)
  Sender: FDA-Public Use
  Company Number: JP-NAPPMUNDI-GBR-2019-0067180

PATIENT

DRUGS (1)
  1. OXIFAST [Suspect]
     Active Substance: OXYCODONE
     Indication: DYSPNOEA
     Dosage: UNK
     Route: 058

REACTIONS (3)
  - Off label use [Unknown]
  - Lung neoplasm malignant [Fatal]
  - No adverse event [Unknown]
